FAERS Safety Report 4527987-0 (Version None)
Quarter: 2004Q4

REPORT INFORMATION
  Report Type: 
  Country: None (occurrence: None)
  Receive Date: 20041123
  Receipt Date: 20040211
  Transmission Date: 20050328
  Serious: Yes (Disabling, Other)
  Sender: FDA-Public Use
  Company Number: 2004009539

PATIENT
  Sex: Male
  Weight: 77.1115 kg

DRUGS (5)
  1. LIPITOR [Suspect]
     Indication: BLOOD CHOLESTEROL INCREASED
     Dosage: 20 MG (DAILY), ORAL
     Route: 048
     Dates: start: 19990101
  2. NITROGLYCERIN [Concomitant]
  3. METOPROLOL TARTRATE [Concomitant]
  4. NICOTINIC ACID [Concomitant]
  5. TRAZODONE HCL [Concomitant]

REACTIONS (7)
  - BURNING SENSATION [None]
  - HYPERHIDROSIS [None]
  - INSOMNIA [None]
  - INTERVERTEBRAL DISC PROTRUSION [None]
  - JOB DISSATISFACTION [None]
  - MYALGIA [None]
  - SPINE MALFORMATION [None]
